FAERS Safety Report 8547241-X (Version None)
Quarter: 2012Q3

REPORT INFORMATION
  Report Type: 
  Country: None (occurrence: None)
  Receive Date: 20120727
  Receipt Date: 20120229
  Transmission Date: 20120928
  Serious: No
  Sender: FDA-Public Use
  Company Number: US-ASTRAZENECA-2012SE14276

PATIENT
  Age: 51 Year
  Sex: Male
  Weight: 99.8 kg

DRUGS (3)
  1. SEROQUEL [Suspect]
     Indication: DEPRESSION
     Route: 048
  2. ZOLOFT [Concomitant]
  3. SEROQUEL [Suspect]
     Indication: BIPOLAR DISORDER
     Route: 048

REACTIONS (6)
  - PERSONALITY CHANGE [None]
  - DRUG DOSE OMISSION [None]
  - PARANOIA [None]
  - IRRITABILITY [None]
  - OFF LABEL USE [None]
  - AGITATION [None]
